FAERS Safety Report 25555892 (Version 1)
Quarter: 2025Q3

REPORT INFORMATION
  Report Type: Spontaneous
  Country: US (occurrence: US)
  Receive Date: 20250715
  Receipt Date: 20250715
  Transmission Date: 20251020
  Serious: No
  Sender: SANOFI AVENTIS
  Company Number: US-SANOFI-02585027

PATIENT
  Age: 53 Year
  Sex: Male

DRUGS (1)
  1. LANTUS SOLOSTAR [Suspect]
     Active Substance: INSULIN GLARGINE
     Indication: Type 2 diabetes mellitus
     Dosage: 8 UNITS IN THE MORNING AND 30 UNITS AT NIGHT; BID
     Route: 065

REACTIONS (2)
  - Off label use [Unknown]
  - Drug administered in wrong device [Unknown]
